FAERS Safety Report 7742859-6 (Version None)
Quarter: 2011Q3

REPORT INFORMATION
  Report Type: 
  Country: None (occurrence: None)
  Receive Date: 20110819
  Receipt Date: 20110510
  Transmission Date: 20111222
  Serious: No
  Sender: FDA-Public Use
  Company Number: 030564

PATIENT
  Sex: Male

DRUGS (3)
  1. LACOSAMIDE [Suspect]
     Indication: COMPLEX PARTIAL SEIZURES
     Dosage: (175 MG BID ORAL)
     Route: 048
     Dates: start: 20110111
  2. LAMICTAL [Suspect]
     Indication: CONVULSION
     Dosage: (200 MG BID ORAL)
     Route: 048
     Dates: start: 20030101
  3. KEPPRA [Suspect]
     Indication: CONVULSION
     Dosage: (2000 MG BID ORAL)
     Dates: start: 20030101

REACTIONS (1)
  - ALANINE AMINOTRANSFERASE INCREASED [None]
